FAERS Safety Report 17577542 (Version 1)
Quarter: 2020Q1

REPORT INFORMATION
  Report Type: Spontaneous
  Country: US (occurrence: US)
  Receive Date: 20200319
  Receipt Date: 20200319
  Transmission Date: 20200409
  Serious: No
  Sender: FDA-Public Use
  Company Number: None

PATIENT
  Age: 68 Year
  Sex: Male

DRUGS (1)
  1. WARFARIN (WARFARIN NA (EXELAN) 5MG TAB [Suspect]
     Active Substance: WARFARIN
     Indication: ATRIAL FIBRILLATION
     Route: 048
     Dates: end: 20191219

REACTIONS (11)
  - Therapy cessation [None]
  - Ischaemic hepatitis [None]
  - Haemorrhage [None]
  - Post procedural haemorrhage [None]
  - Haemoglobin decreased [None]
  - Procedural pain [None]
  - Liver injury [None]
  - Procedural hypotension [None]
  - Gangrene [None]
  - International normalised ratio increased [None]
  - Hepatic congestion [None]

NARRATIVE: CASE EVENT DATE: 20191219
